FAERS Safety Report 20840846 (Version 1)
Quarter: 2022Q2

REPORT INFORMATION
  Report Type: Spontaneous
  Country: US (occurrence: None)
  Receive Date: 20220517
  Receipt Date: 20220517
  Transmission Date: 20220721
  Serious: Yes (unspecified)
  Sender: FDA-Public Use
  Company Number: None

PATIENT
  Age: 47 Year
  Sex: Female
  Weight: 153.9 kg

DRUGS (5)
  1. DULOXETINE [Suspect]
     Active Substance: DULOXETINE
     Indication: Anxiety
     Dosage: OTHER QUANTITY : 1 CAPSULE(S);?FREQUENCY : DAILY;?
     Route: 048
     Dates: start: 20220428, end: 20220513
  2. multiviamin [Concomitant]
  3. calcium citrae [Concomitant]
  4. FIBER [Concomitant]
     Active Substance: PSYLLIUM HUSK
  5. MELATONIN [Concomitant]
     Active Substance: MELATONIN

REACTIONS (6)
  - Dizziness [None]
  - Hypophagia [None]
  - Insomnia [None]
  - Hallucination [None]
  - Dehydration [None]
  - Near death experience [None]

NARRATIVE: CASE EVENT DATE: 20220513
